FAERS Safety Report 8962718 (Version 1)
Quarter: 2012Q4

REPORT INFORMATION
  Report Type: Report from Study
  Country: CA (occurrence: CA)
  Receive Date: 20121213
  Receipt Date: 20121213
  Transmission Date: 20130627
  Serious: Yes (Other)
  Sender: FDA-Public Use
  Company Number: CA-ABBOTT-12P-028-1018738-00

PATIENT
  Sex: Male
  Weight: 64.47 kg

DRUGS (5)
  1. HUMIRA [Suspect]
     Indication: CROHN^S DISEASE
     Dosage: Last dose 01 Nov 2012
     Route: 058
     Dates: start: 20110428, end: 20121101
  2. METHOTREXATE [Concomitant]
     Indication: CROHN^S DISEASE
     Route: 058
     Dates: start: 2011
  3. FOLIC ACID [Concomitant]
     Indication: VITAMIN SUPPLEMENTATION
     Route: 048
     Dates: start: 2011
  4. VITAMIN D NOS [Concomitant]
     Indication: VITAMIN SUPPLEMENTATION
     Route: 048
  5. CALCIUM [Concomitant]
     Indication: MINERAL SUPPLEMENTATION
     Route: 048

REACTIONS (1)
  - Ileal stenosis [Recovering/Resolving]
